FAERS Safety Report 4970244-9 (Version None)
Quarter: 2006Q2

REPORT INFORMATION
  Report Type: 
  Country: None (occurrence: None)
  Receive Date: 20060406
  Receipt Date: 20060328
  Transmission Date: 20061013
  Serious: No
  Sender: FDA-Public Use
  Company Number: 2006-140459-NL

PATIENT
  Age: 65 Year
  Sex: Female

DRUGS (1)
  1. MIRTAZAPINE [Suspect]
     Dosage: 30 MG QD
     Route: 048
     Dates: start: 20030415, end: 20031021

REACTIONS (1)
  - BONE MARROW FAILURE [None]
